FAERS Safety Report 8926917 (Version 1)
Quarter: 2012Q4

REPORT INFORMATION
  Report Type: 
  Country: FR (occurrence: FR)
  Receive Date: 20121127
  Receipt Date: 20121127
  Transmission Date: 20130627
  Serious: Yes (Other)
  Sender: FDA-Public Use
  Company Number: FR-UCBSA-071513

PATIENT
  Age: 15 Year
  Sex: Male

DRUGS (5)
  1. LEVETIRACETAM [Suspect]
     Dosage: IN 2 DIVIDED DOSES
     Route: 048
  2. METHOTREXATE [Interacting]
     Dosage: HIGH DOSE INFUSION, 5G/M^2/24 HOUR
  3. METHOTREXATE [Interacting]
     Route: 037
  4. ONDANSETRON [Concomitant]
     Indication: VOMITING
  5. METOPIMAZINE [Concomitant]
     Indication: VOMITING

REACTIONS (6)
  - Renal failure [Recovered/Resolved]
  - Vomiting [Unknown]
  - Blood pressure increased [Unknown]
  - Blood creatinine increased [Recovered/Resolved]
  - Immunosuppressant drug level increased [Recovered/Resolved]
  - Drug interaction [Unknown]
